FAERS Safety Report 23601347 (Version 1)
Quarter: 2024Q1

REPORT INFORMATION
  Report Type: Report from Study
  Country: CA (occurrence: CA)
  Receive Date: 20240306
  Receipt Date: 20240306
  Transmission Date: 20240410
  Serious: Yes (Hospitalization, Other)
  Sender: FDA-Public Use
  Company Number: CA-002147023-NVSC2023CA061265

PATIENT
  Sex: Male

DRUGS (2)
  1. HYRIMOZ [Suspect]
     Active Substance: ADALIMUMAB-ADAZ
     Indication: Ankylosing spondylitis
     Dosage: 40 MG (ONCE EVERY 28 DAYS)
     Route: 058
     Dates: start: 20220807
  2. HYRIMOZ [Suspect]
     Active Substance: ADALIMUMAB-ADAZ
     Dosage: 40 MG EVERY 4 WEEKS
     Route: 058
     Dates: start: 20240209

REACTIONS (3)
  - Limb injury [Unknown]
  - Musculoskeletal discomfort [Recovering/Resolving]
  - Off label use [Unknown]
